FAERS Safety Report 8716362 (Version 3)
Quarter: 2013Q4

REPORT INFORMATION
  Report Type: Spontaneous
  Country: IT (occurrence: IT)
  Receive Date: 20120810
  Receipt Date: 20131031
  Transmission Date: 20140711
  Serious: Yes (Hospitalization)
  Sender: FDA-Public Use
  Company Number: IT-009507513-1208ITA001616

PATIENT
  Age: 57 Year
  Sex: Female

DRUGS (3)
  1. ZOCOR 10 MG COMPRESSE RIVESTITE CON FILM [Suspect]
     Indication: HYPERCHOLESTEROLAEMIA
     Dosage: 1 DF, QD
     Route: 048
     Dates: start: 20120101, end: 20120710
  2. CARDIOASPIRIN [Suspect]
     Indication: PROPHYLAXIS
     Dosage: 100 MG,QD
     Route: 048
     Dates: start: 20120101, end: 20120710
  3. SERETIDE [Suspect]
     Indication: CHRONIC OBSTRUCTIVE PULMONARY DISEASE
     Dosage: 3 DF QD
     Route: 055
     Dates: start: 20120101, end: 20120710

REACTIONS (1)
  - Renal pain [Recovering/Resolving]
